FAERS Safety Report 11518883 (Version 1)
Quarter: 2015Q3

REPORT INFORMATION
  Report Type: Report from Study
  Country: JP (occurrence: JP)
  Receive Date: 20150917
  Receipt Date: 20150917
  Transmission Date: 20151125
  Serious: Yes (Death, Other)
  Sender: FDA-Public Use
  Company Number: JP-EISAI MEDICAL RESEARCH-EC-2015-009960

PATIENT
  Age: 84 Year
  Sex: Female
  Weight: 37 kg

DRUGS (7)
  1. RINDERON VG [Concomitant]
     Active Substance: BETAMETHASONE VALERATE\GENTAMICIN SULFATE
  2. NEOLAMIN [Concomitant]
  3. UREPEARL [Concomitant]
     Active Substance: UREA
  4. KERATIN [Concomitant]
     Active Substance: KERATIN
  5. LOPEMIN [Concomitant]
     Active Substance: LOPERAMIDE HYDROCHLORIDE
  6. LENVIMA [Suspect]
     Active Substance: LENVATINIB
     Indication: ANAPLASTIC THYROID CANCER
     Route: 048
     Dates: start: 20150721, end: 20150814
  7. AMLODIPINE [Concomitant]
     Active Substance: AMLODIPINE BESYLATE

REACTIONS (2)
  - Diarrhoea [Not Recovered/Not Resolved]
  - Malignant neoplasm progression [Fatal]

NARRATIVE: CASE EVENT DATE: 20150809
